FAERS Safety Report 4882049-8 (Version None)
Quarter: 2006Q1

REPORT INFORMATION
  Report Type: 
  Country: None (occurrence: None)
  Receive Date: 20060112
  Receipt Date: 20060109
  Transmission Date: 20060701
  Serious: Yes (Other)
  Sender: FDA-Public Use
  Company Number: 2361

PATIENT
  Sex: Male

DRUGS (1)
  1. ISOSORBIDE DINITRATE [Suspect]
     Dosage: 5 MG, 3XD, ORAL
     Route: 048
     Dates: start: 20060103

REACTIONS (5)
  - CHEST DISCOMFORT [None]
  - EAR DISCOMFORT [None]
  - EAR PAIN [None]
  - EYE PAIN [None]
  - HEAD DISCOMFORT [None]
